FAERS Safety Report 6358780-4 (Version None)
Quarter: 2009Q3

REPORT INFORMATION
  Report Type: 
  Country: None (occurrence: None)
  Receive Date: 20090916
  Receipt Date: 20090819
  Transmission Date: 20100115
  Serious: No
  Sender: FDA-Public Use
  Company Number: US-ABBOTT-09P-163-0588970-00

PATIENT
  Sex: Female
  Weight: 74.456 kg

DRUGS (10)
  1. TRILIPIX [Suspect]
     Indication: BLOOD CHOLESTEROL INCREASED
     Dates: start: 20090626
  2. SIMVASTATIN [Concomitant]
     Indication: BLOOD CHOLESTEROL INCREASED
  3. HYDROCHLOROTHIAZIDE [Concomitant]
     Indication: FLUID RETENTION
  4. ZEGERID [Concomitant]
     Indication: FLATULENCE
  5. GLIMEPIRIDE [Concomitant]
     Indication: DIABETES MELLITUS
  6. AZOR [Concomitant]
     Indication: HYPERTENSION
  7. HYDRALAZINE HCL [Concomitant]
     Indication: HYPERTENSION
  8. ALLOPURINOL [Concomitant]
     Indication: GOUT
  9. BYSTOLIC [Concomitant]
     Indication: HYPERTENSION
  10. PLAVIX [Concomitant]
     Indication: CEREBROVASCULAR ACCIDENT

REACTIONS (5)
  - ABDOMINAL PAIN UPPER [None]
  - BACK PAIN [None]
  - DYSPEPSIA [None]
  - HEADACHE [None]
  - NAUSEA [None]
